FAERS Safety Report 23768319 (Version 3)
Quarter: 2024Q2

REPORT INFORMATION
  Report Type: Spontaneous
  Country: GR (occurrence: GR)
  Receive Date: 20240422
  Receipt Date: 20240502
  Transmission Date: 20240716
  Serious: No
  Sender: FDA-Public Use
  Company Number: GR-PFIZER INC-PV202400043146

PATIENT
  Age: 12 Year
  Sex: Female

DRUGS (2)
  1. GENOTROPIN [Suspect]
     Active Substance: SOMATROPIN
     Indication: Body height decreased
     Dosage: 7 MG, WEEKLY
     Route: 058
     Dates: start: 20240122
  2. GENOTROPIN [Suspect]
     Active Substance: SOMATROPIN
     Indication: Short stature
     Dosage: 7 MG, WEEKLY
     Route: 058
     Dates: start: 2024

REACTIONS (3)
  - Device use error [Unknown]
  - Device leakage [Unknown]
  - Device use confusion [Unknown]
